FAERS Safety Report 4502364-7 (Version None)
Quarter: 2004Q4

REPORT INFORMATION
  Report Type: 
  Country: None (occurrence: None)
  Receive Date: 20041110
  Receipt Date: 20041028
  Transmission Date: 20050328
  Serious: Yes (Death, Other)
  Sender: FDA-Public Use
  Company Number: 2004081563

PATIENT
  Age: 38 Year
  Sex: Female

DRUGS (4)
  1. VFEND [Suspect]
     Indication: FUNGAL INFECTION
  2. VFEND [Suspect]
     Indication: LEUKAEMIA
  3. IMMUNOSUPPRESSIVE AGENTS [Concomitant]
  4. ALL OTHER THERAPEUTIC PRODUCTS [Concomitant]

REACTIONS (3)
  - BLINDNESS [None]
  - FUNGAL INFECTION [None]
  - LEUKAEMIA [None]
